FAERS Safety Report 10721192 (Version 1)
Quarter: 2015Q1

REPORT INFORMATION
  Report Type: Spontaneous
  Country: US (occurrence: US)
  Receive Date: 20150119
  Receipt Date: 20150119
  Transmission Date: 20150721
  Serious: No
  Sender: FDA-Public Use
  Company Number: US-SHIRE-US201500320

PATIENT
  Sex: Male

DRUGS (3)
  1. ADDERALL XR [Suspect]
     Active Substance: AMPHETAMINE ASPARTATE\AMPHETAMINE SULFATE\DEXTROAMPHETAMINE SACCHARATE\DEXTROAMPHETAMINE SULFATE
     Indication: ANXIETY
     Dosage: 30 MG, 2X/DAY:BID (ONE AT 6AM AND ONE AT 1PM)
     Route: 048
     Dates: start: 201405, end: 20150107
  2. ADDERALL XR [Suspect]
     Active Substance: AMPHETAMINE ASPARTATE\AMPHETAMINE SULFATE\DEXTROAMPHETAMINE SACCHARATE\DEXTROAMPHETAMINE SULFATE
     Indication: DISTURBANCE IN ATTENTION
  3. ADDERALL XR [Suspect]
     Active Substance: AMPHETAMINE ASPARTATE\AMPHETAMINE SULFATE\DEXTROAMPHETAMINE SACCHARATE\DEXTROAMPHETAMINE SULFATE
     Indication: POST-TRAUMATIC STRESS DISORDER
     Dosage: 30 MG, 1X/DAY:QD
     Route: 048
     Dates: start: 201404, end: 201405

REACTIONS (8)
  - Disturbance in attention [Unknown]
  - Drug effect decreased [Recovered/Resolved]
  - Inappropriate schedule of drug administration [Recovered/Resolved]
  - Depressed mood [Unknown]
  - Feeling jittery [Recovered/Resolved]
  - Therapeutic response unexpected [Unknown]
  - Prescribed overdose [Recovered/Resolved]
  - Potentiating drug interaction [Unknown]

NARRATIVE: CASE EVENT DATE: 201404
